FAERS Safety Report 6329550-8 (Version None)
Quarter: 2009Q3

REPORT INFORMATION
  Report Type: 
  Country: None (occurrence: None)
  Receive Date: 20090825
  Receipt Date: 20090825
  Transmission Date: 20100115
  Serious: Yes (Life-Threatening, Hospitalization)
  Sender: FDA-Public Use
  Company Number: None

PATIENT
  Sex: Female
  Weight: 60.782 kg

DRUGS (1)
  1. MIRENA [Suspect]
     Indication: CONTRACEPTION
     Dates: start: 20071025, end: 20071229

REACTIONS (8)
  - CERVICITIS [None]
  - CHOLECYSTITIS ACUTE [None]
  - DISSEMINATED INTRAVASCULAR COAGULATION [None]
  - GANGRENE [None]
  - MULTI-ORGAN FAILURE [None]
  - RENAL FAILURE ACUTE [None]
  - SEPTIC SHOCK [None]
  - TOXIC SHOCK SYNDROME STREPTOCOCCAL [None]
